FAERS Safety Report 11193626 (Version 1)
Quarter: 2015Q2

REPORT INFORMATION
  Report Type: Spontaneous
  Country: HU (occurrence: HU)
  Receive Date: 20150616
  Receipt Date: 20150616
  Transmission Date: 20150821
  Serious: Yes (Death, Other)
  Sender: FDA-Public Use
  Company Number: HU-BRISTOL-MYERS SQUIBB COMPANY-BMS-2015-037473

PATIENT
  Age: 70 Year
  Sex: Female

DRUGS (1)
  1. YERVOY [Suspect]
     Active Substance: IPILIMUMAB
     Indication: MALIGNANT MELANOMA
     Dosage: 180 MG, UNK
     Route: 065
     Dates: end: 201501

REACTIONS (5)
  - Gastrointestinal necrosis [Fatal]
  - Hypophysitis [Unknown]
  - Sepsis [Unknown]
  - Pancytopenia [Unknown]
  - Abdominal operation [Unknown]
